FAERS Safety Report 6769076-0 (Version None)
Quarter: 2010Q2

REPORT INFORMATION
  Report Type: 
  Country: None (occurrence: None)
  Receive Date: 20100615
  Receipt Date: 20100330
  Transmission Date: 20101027
  Serious: Yes (Other)
  Sender: FDA-Public Use
  Company Number: US-ASTRAZENECA-2007UW09025

PATIENT
  Age: 16411 Day
  Sex: Female

DRUGS (14)
  1. SEROQUEL [Suspect]
     Route: 048
     Dates: start: 19991206
  2. SEROQUEL [Suspect]
     Dosage: 200 MG 2 HS
     Route: 048
     Dates: start: 20010126
  3. HALDOL [Concomitant]
     Dates: start: 20010126
  4. ZOLOFT [Concomitant]
     Dosage: 100 MG 2 AM
     Dates: start: 20010126
  5. RISPERDAL [Concomitant]
     Dates: start: 20030828
  6. PAXIL CR [Concomitant]
     Dates: start: 20030828
  7. TRILEPTAL [Concomitant]
     Dosage: ONE AND HALF TABLET TWICE A DAY
     Dates: start: 20030828
  8. GLUCOTROL [Concomitant]
     Dates: start: 20030828
  9. GLUCOPHAGE [Concomitant]
     Dates: start: 20030828
  10. DITROPAN [Concomitant]
     Dates: start: 20030828
  11. LIPITOR [Concomitant]
     Dates: start: 20030828
  12. CELEBREX [Concomitant]
     Dates: start: 20030828
  13. VASOTEC [Concomitant]
     Indication: HYPERTENSION
     Dates: start: 20030828
  14. DEPAKOTE [Concomitant]
     Dosage: 500 MG ONE IN MORNING AND TWO AT NIGHT
     Dates: start: 19991206

REACTIONS (2)
  - DIABETES MELLITUS [None]
  - NEUROPATHY PERIPHERAL [None]
